FAERS Safety Report 8916397 (Version 1)
Quarter: 2012Q4

REPORT INFORMATION
  Report Type: 
  Country: GB (occurrence: GB)
  Receive Date: 20121120
  Receipt Date: 20121120
  Transmission Date: 20130627
  Serious: Yes (Life-Threatening, Other)
  Sender: FDA-Public Use
  Company Number: GB-TEVA-369300ISR

PATIENT
  Age: 20 Year
  Sex: Female

DRUGS (2)
  1. METHOTREXATE [Suspect]
     Indication: PSORIASIS
     Route: 058
     Dates: start: 20120401, end: 20121015
  2. FOLIC ACID [Concomitant]

REACTIONS (2)
  - Complex partial seizures [Not Recovered/Not Resolved]
  - Syncope [Unknown]
